FAERS Safety Report 8179785-7 (Version None)
Quarter: 2012Q1

REPORT INFORMATION
  Report Type: 
  Country: None (occurrence: None)
  Receive Date: 20120229
  Receipt Date: 20120217
  Transmission Date: 20120608
  Serious: Yes (Hospitalization)
  Sender: FDA-Public Use
  Company Number: TPA2012A00476

PATIENT
  Age: 76 Year
  Sex: Female
  Weight: 128.2 kg

DRUGS (15)
  1. LIPITOR [Concomitant]
  2. MULTIVITAMIN (ERGOCALCIFEROL, ASCORBIC ACID, PYRIDOXINE HYDROCHLORIDE, [Concomitant]
  3. VITAMIN D [Concomitant]
  4. BONIVA [Concomitant]
  5. ACTOS [Suspect]
     Indication: TYPE 2 DIABETES MELLITUS
     Dates: start: 20070401, end: 20090706
  6. GLIMEPIRIDE [Concomitant]
  7. DIOVAN [Concomitant]
  8. IRON (IRON) [Concomitant]
  9. SEROQUEL [Concomitant]
  10. DUETACT [Suspect]
     Indication: TYPE 2 DIABETES MELLITUS
     Dates: end: 20120101
  11. JANUVIA [Concomitant]
  12. ASPIRIN [Concomitant]
  13. NEURONTIN [Concomitant]
  14. RANITIDINE HCL [Concomitant]
  15. ACETAMINOPHEN [Concomitant]

REACTIONS (2)
  - BACK PAIN [None]
  - BLADDER TRANSITIONAL CELL CARCINOMA [None]
